FAERS Safety Report 5373430-1 (Version None)
Quarter: 2007Q2

REPORT INFORMATION
  Report Type: 
  Country: None (occurrence: None)
  Receive Date: 20070626
  Receipt Date: 20070626
  Transmission Date: 20071010
  Serious: Yes (Hospitalization)
  Sender: FDA-Public Use
  Company Number: None

PATIENT
  Age: 51 Year
  Sex: Male
  Weight: 56 kg

DRUGS (10)
  1. RIFAMPIN 300MG UNKNOWN [Suspect]
     Indication: EXTRADURAL ABSCESS
     Dosage: 300MG TWICE DAILY PO
     Route: 048
  2. BACTRIM DS [Suspect]
     Indication: INFECTION
     Dosage: 1 TABLET TWICE DAILY PO
     Route: 048
  3. FLUOXETINE [Concomitant]
  4. GABAPENTIN [Concomitant]
  5. GLIPIZIDE [Concomitant]
  6. HYDROCHLOROTHIAZIDE [Concomitant]
  7. HYDROCODONE BITARTRATE [Concomitant]
  8. INSULIN [Concomitant]
  9. LISINOPRIL [Concomitant]
  10. METOPROLOL SUCCINATE [Concomitant]

REACTIONS (1)
  - NEPHRITIS INTERSTITIAL [None]
